FAERS Safety Report 11202493 (Version 2)
Quarter: 2015Q3

REPORT INFORMATION
  Report Type: Spontaneous
  Country: US (occurrence: US)
  Receive Date: 20150619
  Receipt Date: 20150925
  Transmission Date: 20151125
  Serious: Yes (Other)
  Sender: FDA-Public Use
  Company Number: US-PFIZER INC-2015201759

PATIENT
  Age: 62 Year
  Sex: Female
  Weight: 111 kg

DRUGS (1)
  1. IBRANCE [Suspect]
     Active Substance: PALBOCICLIB
     Indication: BREAST CANCER
     Dosage: 125 MG, ON D1-D21 EVERY 28 DAYS
     Route: 048
     Dates: start: 20150514

REACTIONS (4)
  - Peripheral swelling [Unknown]
  - Renal impairment [Unknown]
  - Axillary mass [Unknown]
  - Breast pain [Unknown]

NARRATIVE: CASE EVENT DATE: 20150615
